FAERS Safety Report 11262911 (Version 1)
Quarter: 2015Q3

REPORT INFORMATION
  Report Type: Spontaneous
  Country: CA (occurrence: CA)
  Receive Date: 20150710
  Receipt Date: 20150710
  Transmission Date: 20151125
  Serious: Yes (Other)
  Sender: FDA-Public Use
  Company Number: CA-HOSPIRA-2771393

PATIENT
  Age: 28 Year
  Sex: Female

DRUGS (2)
  1. METRONIDAZOLE. [Suspect]
     Active Substance: METRONIDAZOLE
     Indication: ORAL CANDIDIASIS
     Dosage: NOT REPORTED
     Route: 042
  2. CLOZARIL [Suspect]
     Active Substance: CLOZAPINE
     Indication: PRODUCT USED FOR UNKNOWN INDICATION
     Dosage: NOT REPORTED
     Route: 065

REACTIONS (4)
  - Tooth infection [Unknown]
  - Agranulocytosis [Unknown]
  - Neutrophil count decreased [Unknown]
  - White blood cell count decreased [Unknown]
